FAERS Safety Report 7954357-5 (Version None)
Quarter: 2011Q4

REPORT INFORMATION
  Report Type: 
  Country: None (occurrence: None)
  Receive Date: 20111202
  Receipt Date: 20111122
  Transmission Date: 20120403
  Serious: Yes (Other)
  Sender: FDA-Public Use
  Company Number: CA-JNJFOC-20111110909

PATIENT
  Sex: Female

DRUGS (4)
  1. MESALAMINE [Concomitant]
  2. RAMIPRIL [Concomitant]
  3. REMICADE [Suspect]
     Indication: CROHN'S DISEASE
     Route: 042
     Dates: start: 20090421
  4. FERROUS SULFATE TAB [Concomitant]

REACTIONS (1)
  - SKIN ULCER [None]
